FAERS Safety Report 16874070 (Version 5)
Quarter: 2019Q4

REPORT INFORMATION
  Report Type: Report from Study
  Country: CN (occurrence: CN)
  Receive Date: 20191001
  Receipt Date: 20191114
  Transmission Date: 20200122
  Serious: Yes (Death, Other)
  Sender: FDA-Public Use
  Company Number: CN-GILEAD-2019-0428602

PATIENT
  Age: 63 Year
  Sex: Female
  Weight: 70.7 kg

DRUGS (94)
  1. CYCLOPHOSPHAMIDE. [Suspect]
     Active Substance: CYCLOPHOSPHAMIDE
     Indication: BONE MARROW CONDITIONING REGIMEN
     Dosage: 870 MG (500MG/M2), QD
     Route: 042
     Dates: start: 20190828, end: 20190830
  2. FENTANYL TRANSDERMAL SYSTEM [Concomitant]
     Active Substance: FENTANYL
     Dosage: 4200 UG, SINGLE
     Route: 003
     Dates: start: 20190901, end: 20190901
  3. PANTOPRAZOLE SODIUM. [Concomitant]
     Active Substance: PANTOPRAZOLE SODIUM
     Indication: PROPHYLAXIS
     Dosage: 40 MG, QD
     Route: 048
     Dates: start: 20190901, end: 20190907
  4. POTASSIUM CHLORIDE. [Concomitant]
     Active Substance: POTASSIUM CHLORIDE
     Dosage: 1 G, TID
     Route: 048
     Dates: start: 20190906, end: 20190907
  5. PROMETHAZINE HYDROCHLORIDE. [Concomitant]
     Active Substance: PROMETHAZINE HYDROCHLORIDE
     Indication: ALLERGY PROPHYLAXIS
     Dosage: 25 MG, SINGLE
     Route: 030
     Dates: start: 20190902, end: 20190902
  6. SODIUM CHLORIDE + DEXTROSE [Concomitant]
     Indication: FLUID REPLACEMENT
     Dosage: 500 ML, QD
     Route: 041
     Dates: start: 20190903, end: 20190906
  7. HUMAN ALBUMIN [Concomitant]
     Active Substance: ALBUMIN HUMAN
     Dosage: 10 G, QD
     Route: 041
     Dates: start: 20190905, end: 20190909
  8. HUMAN ALBUMIN [Concomitant]
     Active Substance: ALBUMIN HUMAN
     Dosage: 10 G, BID
     Route: 041
     Dates: start: 20190917, end: 20190917
  9. POLYENE PHOSPHATIDYLCHOLINE [Concomitant]
     Active Substance: PHOSPHOLIPID
     Dosage: 697.5 MG, ST
     Route: 041
     Dates: start: 20190909, end: 20190909
  10. ETAMSYLATE [Concomitant]
     Active Substance: ETHAMSYLATE
     Indication: PLATELET COUNT DECREASED
     Dosage: 1 G, QD
     Route: 041
     Dates: start: 20190905, end: 20190908
  11. SODIUM GLYCEROPHOSPHATE [Concomitant]
     Active Substance: SODIUM GLYCEROPHOSPHATE
     Dosage: 10 ML, SINGLE
     Route: 041
     Dates: start: 20190908, end: 20190908
  12. HEMOCOAGULASE, AGKISTRODON [Concomitant]
     Indication: HAEMORRHAGE PROPHYLAXIS
     Dosage: 2 U, BID
     Route: 042
     Dates: start: 20190907, end: 20190907
  13. PHENOBARBITAL SODIUM. [Concomitant]
     Active Substance: PHENOBARBITAL SODIUM
     Indication: CAR T-CELL-RELATED ENCEPHALOPATHY SYNDROME
     Dosage: 100 MG
     Route: 030
     Dates: start: 20190907, end: 20190907
  14. METHYLPREDNISOLONE SODIUM SUCCINATE. [Concomitant]
     Active Substance: METHYLPREDNISOLONE SODIUM SUCCINATE
     Indication: CAR T-CELL-RELATED ENCEPHALOPATHY SYNDROME
     Dosage: 70 MG, ST
     Route: 041
     Dates: start: 20190907, end: 20190907
  15. DOPAMINE HYDROCHLORIDE. [Concomitant]
     Active Substance: DOPAMINE HYDROCHLORIDE
     Dosage: 500 MG, QD
     Route: 041
     Dates: start: 20190916, end: 20190918
  16. OMEPRAZOLE. [Concomitant]
     Active Substance: OMEPRAZOLE
     Dosage: 40 MG, TID
     Route: 042
     Dates: start: 20190909, end: 20190909
  17. PANTOPRAZOLE SODIUM. [Concomitant]
     Active Substance: PANTOPRAZOLE SODIUM
     Indication: GASTROINTESTINAL DISORDER THERAPY
  18. POTASSIUM CHLORIDE. [Concomitant]
     Active Substance: POTASSIUM CHLORIDE
     Dosage: 30 ML, SINGLE
     Route: 041
     Dates: start: 20190916, end: 20190916
  19. SODIUM GLYCEROPHOSPHATE [Concomitant]
     Active Substance: SODIUM GLYCEROPHOSPHATE
     Indication: BLOOD PHOSPHORUS DECREASED
     Dosage: 10 ML, SINGLE
     Route: 041
     Dates: start: 20190905, end: 20190905
  20. HEMOCOAGULASE, AGKISTRODON [Concomitant]
     Dosage: 2 U, QD
     Route: 042
     Dates: start: 20190908, end: 20190909
  21. FRESH FROZEN PLASMA [Concomitant]
     Active Substance: HUMAN PLASMA
     Indication: BLOOD FIBRINOGEN DECREASED
     Dosage: 200 ML, SINGLE
     Route: 041
     Dates: start: 20190907, end: 20190907
  22. MIDAZOLAM [Concomitant]
     Active Substance: MIDAZOLAM HYDROCHLORIDE
     Dosage: 110 MG
     Dates: start: 20190913
  23. SOLU-MEDROL [Concomitant]
     Active Substance: METHYLPREDNISOLONE SODIUM SUCCINATE
     Dosage: 1000 MG, QD
     Route: 041
     Dates: start: 20190908, end: 20190909
  24. OMEPRAZOLE. [Concomitant]
     Active Substance: OMEPRAZOLE
     Indication: PROPHYLAXIS
     Dosage: 20 MG, QD
     Route: 048
     Dates: start: 20190828, end: 20190831
  25. POLYMYXIN B. [Concomitant]
     Active Substance: POLYMYXIN B
     Indication: INFECTION PROPHYLAXIS
     Dosage: 60 G, SINGLE
     Route: 003
     Dates: start: 20190830, end: 20190830
  26. ONDANSETRON HYDROCHLORIDE. [Concomitant]
     Active Substance: ONDANSETRON HYDROCHLORIDE
     Indication: PROPHYLAXIS OF NAUSEA AND VOMITING
     Dosage: 4 MG, SINGLE
     Route: 042
     Dates: start: 20190830, end: 20190830
  27. POTASSIUM CHLORIDE. [Concomitant]
     Active Substance: POTASSIUM CHLORIDE
     Indication: HAEMOFILTRATION
     Dosage: 0.5 G, TID
     Route: 048
     Dates: start: 20190903, end: 20190905
  28. POTASSIUM CHLORIDE. [Concomitant]
     Active Substance: POTASSIUM CHLORIDE
     Dosage: 30 ML, QD
     Route: 041
     Dates: start: 20190921, end: 20190921
  29. GLUCOSE [Concomitant]
     Active Substance: DEXTROSE
     Indication: FLUID REPLACEMENT
     Dosage: 500 ML, QD
     Route: 041
     Dates: start: 20190903, end: 20190906
  30. FONDAPARINUX SODIUM. [Concomitant]
     Active Substance: FONDAPARINUX SODIUM
     Indication: FIBRIN D DIMER INCREASED
     Dosage: 2.5 MG, QD
     Route: 058
     Dates: start: 20190907, end: 20190908
  31. PHENOBARBITAL SODIUM. [Concomitant]
     Active Substance: PHENOBARBITAL SODIUM
     Dosage: 100 MG, BID
     Route: 030
     Dates: start: 20190908, end: 20190908
  32. MANNITOL. [Concomitant]
     Active Substance: MANNITOL
     Indication: CAR T-CELL-RELATED ENCEPHALOPATHY SYNDROME
     Dosage: 125 ML, SINGLE
     Route: 041
     Dates: start: 20190907, end: 20190907
  33. PLATELETS [Concomitant]
     Active Substance: HUMAN PLATELET, ALLOGENIC
     Indication: PLATELET COUNT DECREASED
     Dosage: 1 U, SINGLE
     Route: 041
     Dates: start: 20190907, end: 20190907
  34. MIDAZOLAM [Concomitant]
     Active Substance: MIDAZOLAM HYDROCHLORIDE
     Dosage: 30 MG, BID
     Route: 041
     Dates: start: 20190909, end: 20190909
  35. MIDAZOLAM [Concomitant]
     Active Substance: MIDAZOLAM HYDROCHLORIDE
     Dosage: 35 MG, ST
     Route: 041
     Dates: start: 20190909, end: 20190909
  36. SOLU-MEDROL [Concomitant]
     Active Substance: METHYLPREDNISOLONE SODIUM SUCCINATE
     Dosage: 60 MG, BID
     Route: 041
     Dates: start: 20190908, end: 20190909
  37. LEVETIRACETAM. [Concomitant]
     Active Substance: LEVETIRACETAM
     Dosage: 0.5 G, BID
     Route: 048
     Dates: start: 20190908, end: 20190908
  38. OMEPRAZOLE. [Concomitant]
     Active Substance: OMEPRAZOLE
     Dosage: 40 MG, BID
     Route: 042
     Dates: start: 20190907, end: 20190908
  39. POTASSIUM CHLORIDE. [Concomitant]
     Active Substance: POTASSIUM CHLORIDE
     Dosage: 40 ML, QD
     Route: 041
     Dates: start: 20190906, end: 20190907
  40. POTASSIUM CHLORIDE. [Concomitant]
     Active Substance: POTASSIUM CHLORIDE
     Dosage: 30 ML, QD
     Route: 041
     Dates: start: 20190908, end: 20190909
  41. TRIMETAZIDINE DIHYDROCHLORIDE [Concomitant]
     Active Substance: TRIMETAZIDINE DIHYDROCHLORIDE
     Dosage: 35 MG, BID
     Route: 048
     Dates: start: 20190906, end: 20190907
  42. CLOSTRIDIUM BUTYRICUM [Concomitant]
     Active Substance: CLOSTRIDIUM BUTYRICUM SPORES STRAIN M-55
     Dosage: 20 MG, TID
     Route: 048
     Dates: start: 20190906, end: 20190907
  43. HUMAN ALBUMIN [Concomitant]
     Active Substance: ALBUMIN HUMAN
     Dosage: 40 G, SINGLE
     Route: 041
     Dates: start: 20190920, end: 20190920
  44. DIPROPHYLLINE [Concomitant]
     Active Substance: DYPHYLLINE
     Dosage: 0.5 G, ST
     Route: 041
     Dates: start: 20190908, end: 20190908
  45. MIDAZOLAM [Concomitant]
     Active Substance: MIDAZOLAM HYDROCHLORIDE
     Dosage: 30 MG, SINGLE
     Route: 041
     Dates: start: 20190908, end: 20190908
  46. MIDAZOLAM [Concomitant]
     Active Substance: MIDAZOLAM HYDROCHLORIDE
     Dosage: 30 MG, QD
     Route: 041
     Dates: start: 20190917, end: 20190918
  47. LEVETIRACETAM. [Concomitant]
     Active Substance: LEVETIRACETAM
     Dosage: 0.25 G, BID
     Route: 048
     Dates: start: 20190903, end: 20190907
  48. CEFOTAXIME SODIUM [Concomitant]
     Active Substance: CEFOTAXIME SODIUM
     Indication: INFECTION PROPHYLAXIS
     Dosage: 2 G, QD
     Route: 041
     Dates: start: 20190829, end: 20190903
  49. POTASSIUM CHLORIDE. [Concomitant]
     Active Substance: POTASSIUM CHLORIDE
     Dosage: 9 ML, Q1HR
     Dates: start: 20190909, end: 20190910
  50. MONTMORILLONITE [Concomitant]
     Active Substance: MONTMORILLONITE
     Indication: DIARRHOEA
     Dosage: 12 G, SINGLE
     Route: 048
     Dates: start: 20190905, end: 20190905
  51. CLOSTRIDIUM BUTYRICUM [Concomitant]
     Active Substance: CLOSTRIDIUM BUTYRICUM SPORES STRAIN M-55
     Indication: DIARRHOEA
     Dosage: 20 MG, BID
     Route: 048
     Dates: start: 20190905, end: 20190905
  52. MAGNESIUM ISOGLYCYRRHIZINATE [Concomitant]
     Active Substance: MAGNESIUM ISOGLYCYRRHIZINATE
     Dosage: 30 ML, ST
     Route: 041
     Dates: start: 20190909, end: 20190909
  53. ETAMSYLATE [Concomitant]
     Active Substance: ETHAMSYLATE
     Indication: HAEMOSTASIS
     Dosage: 1 G, BID
     Route: 041
     Dates: start: 20190909, end: 20190909
  54. DIAZEPAM. [Concomitant]
     Active Substance: DIAZEPAM
     Indication: CAR T-CELL-RELATED ENCEPHALOPATHY SYNDROME
     Dosage: 10 MG, ST
     Route: 042
     Dates: start: 20190907, end: 20190907
  55. MANNITOL. [Concomitant]
     Active Substance: MANNITOL
     Dosage: 125 ML, BID
     Route: 041
     Dates: start: 20190908, end: 20190909
  56. RECOMBINANT HUMAN THROMBOPOIETIN [Concomitant]
     Active Substance: THROMBOPOIETIN
     Indication: PLATELET COUNT DECREASED
     Dosage: 15000 U, QD
     Route: 058
     Dates: start: 20190905, end: 20190909
  57. POLYMYXIN B. [Concomitant]
     Active Substance: POLYMYXIN B
     Dosage: 20 G, SINGLE
     Route: 003
     Dates: start: 20190918, end: 20190918
  58. POTASSIUM CHLORIDE. [Concomitant]
     Active Substance: POTASSIUM CHLORIDE
     Dosage: 30 ML, ONCE
     Route: 048
     Dates: start: 20190905, end: 20190905
  59. POTASSIUM CHLORIDE. [Concomitant]
     Active Substance: POTASSIUM CHLORIDE
     Dosage: 30 ML, SINGLE
     Dates: start: 20190917, end: 20190917
  60. GLUCOSE [Concomitant]
     Active Substance: DEXTROSE
     Dosage: 500 ML, SINGLE
     Route: 041
     Dates: start: 20190921, end: 20190921
  61. POLYENE PHOSPHATIDYLCHOLINE [Concomitant]
     Active Substance: PHOSPHOLIPID
     Indication: LIVER INJURY
     Dosage: 697.5 MG, QD
     Route: 041
     Dates: start: 20190905, end: 20190907
  62. METOCLOPRAMIDE DIHYDROCHLORIDE [Concomitant]
     Indication: GASTROINTESTINAL DISORDER THERAPY
     Dosage: 10 MG, ST
     Route: 030
     Dates: start: 20190908, end: 20190908
  63. MIDAZOLAM [Concomitant]
     Active Substance: MIDAZOLAM HYDROCHLORIDE
     Indication: CAR T-CELL-RELATED ENCEPHALOPATHY SYNDROME
     Dosage: 15 MG, QD
     Route: 041
     Dates: start: 20190907, end: 20190908
  64. METARAMINOL BITARTRATE [Concomitant]
     Active Substance: METARAMINOL BITARTRATE
     Indication: CAR T-CELL-RELATED ENCEPHALOPATHY SYNDROME
     Dosage: 10 MG, QD
     Route: 041
     Dates: start: 20190908, end: 20190908
  65. LEVETIRACETAM. [Concomitant]
     Active Substance: LEVETIRACETAM
     Indication: SEIZURE PROPHYLAXIS
     Dosage: 0.25 G, SINGLE
     Route: 048
     Dates: start: 20190902, end: 20190902
  66. PALONOSETRON HYDROCHLORIDE. [Concomitant]
     Active Substance: PALONOSETRON HYDROCHLORIDE
     Indication: PROPHYLAXIS
     Dosage: 0.5 MG, QD
     Route: 048
     Dates: start: 20190828, end: 20190830
  67. BUCINNAZINE HYDROCHLORIDE [Concomitant]
     Indication: PAIN
     Dosage: 100 MG, ST
     Route: 030
     Dates: start: 20190828, end: 20190828
  68. ONDANSETRON HYDROCHLORIDE. [Concomitant]
     Active Substance: ONDANSETRON HYDROCHLORIDE
     Dosage: 4 MG, QD
     Route: 042
     Dates: start: 20190905, end: 20190909
  69. POTASSIUM CHLORIDE. [Concomitant]
     Active Substance: POTASSIUM CHLORIDE
     Indication: BLOOD POTASSIUM DECREASED
     Dosage: 0.5 G, SINGLE
     Route: 048
     Dates: start: 20190902, end: 20190902
  70. GLUCOSE [Concomitant]
     Active Substance: DEXTROSE
     Dosage: 500 ML, QD
     Route: 041
     Dates: start: 20190917, end: 20190918
  71. HUMAN ALBUMIN [Concomitant]
     Active Substance: ALBUMIN HUMAN
     Dosage: 10 G, SINGLE
     Route: 041
     Dates: start: 20190920, end: 20190920
  72. SODIUM GLYCEROPHOSPHATE [Concomitant]
     Active Substance: SODIUM GLYCEROPHOSPHATE
     Dosage: 20 ML, SINGLE
     Route: 041
     Dates: start: 20190907, end: 20190907
  73. METOCLOPRAMIDE DIHYDROCHLORIDE [Concomitant]
     Indication: PROPHYLAXIS
     Dosage: 10 MG, SINGLE
     Route: 030
     Dates: start: 20190905, end: 20190905
  74. COMPOUND GLYCYRRHIZA ORAL SOLUTION [Concomitant]
     Indication: COUGH
     Dosage: 180 ML, SINGLE
     Route: 048
     Dates: start: 20190907, end: 20190907
  75. DOPAMINE HYDROCHLORIDE. [Concomitant]
     Active Substance: DOPAMINE HYDROCHLORIDE
     Indication: CAR T-CELL-RELATED ENCEPHALOPATHY SYNDROME
     Dosage: 200 MG, QD
     Route: 041
     Dates: start: 20190907, end: 20190907
  76. DEXAMETHASONE SODIUM PHOSPHATE. [Concomitant]
     Active Substance: DEXAMETHASONE SODIUM PHOSPHATE
     Indication: CAR T-CELL-RELATED ENCEPHALOPATHY SYNDROME
     Dosage: 10 MG, SINGLE
     Route: 041
     Dates: start: 20190907, end: 20190907
  77. AXICABTAGENE CILOLEUCEL [Suspect]
     Active Substance: AXICABTAGENE CILOLEUCEL
     Indication: DIFFUSE LARGE B-CELL LYMPHOMA
     Dosage: 68 ML, ONCE
     Route: 042
     Dates: start: 20190902, end: 20190902
  78. FLUDARABINE [Suspect]
     Active Substance: FLUDARABINE PHOSPHATE
     Indication: BONE MARROW CONDITIONING REGIMEN
     Dosage: 52.2 MG (30MG/M2), QD
     Route: 042
     Dates: start: 20190828, end: 20190830
  79. FENTANYL TRANSDERMAL SYSTEM [Concomitant]
     Active Substance: FENTANYL
     Indication: PAIN
     Dosage: 4200 UG, SINGLE
     Route: 003
     Dates: start: 20190829, end: 20190829
  80. POTASSIUM CHLORIDE. [Concomitant]
     Active Substance: POTASSIUM CHLORIDE
     Dosage: 50 ML, SINGLE
     Route: 041
     Dates: start: 20190909, end: 20190909
  81. POTASSIUM CHLORIDE. [Concomitant]
     Active Substance: POTASSIUM CHLORIDE
     Dosage: 20 ML, QD
     Route: 041
     Dates: start: 20190919, end: 20190920
  82. TRIMETAZIDINE DIHYDROCHLORIDE [Concomitant]
     Active Substance: TRIMETAZIDINE DIHYDROCHLORIDE
     Indication: PAIN
     Dosage: 35 MG, SINGLE
     Route: 048
     Dates: start: 20190905, end: 20190905
  83. HUMAN ALBUMIN [Concomitant]
     Active Substance: ALBUMIN HUMAN
     Indication: BLOOD ALBUMIN DECREASED
     Dosage: 10 G, QD
     Route: 041
     Dates: start: 20190905
  84. HUMAN ALBUMIN [Concomitant]
     Active Substance: ALBUMIN HUMAN
     Dosage: 10 G, SINGLE
     Route: 041
     Dates: start: 20190918, end: 20190918
  85. HUMAN ALBUMIN [Concomitant]
     Active Substance: ALBUMIN HUMAN
     Dosage: 10 G, 5 TIMES PER DAY
     Route: 041
     Dates: start: 20190921, end: 20190921
  86. MAGNESIUM ISOGLYCYRRHIZINATE [Concomitant]
     Active Substance: MAGNESIUM ISOGLYCYRRHIZINATE
     Indication: LIVER INJURY
     Dosage: 30 ML, QD
     Route: 041
     Dates: start: 20190905, end: 20190906
  87. ETAMSYLATE [Concomitant]
     Active Substance: ETHAMSYLATE
     Dosage: 0.5 MG, ST
     Route: 041
     Dates: start: 20190920, end: 20190920
  88. METOCLOPRAMIDE DIHYDROCHLORIDE [Concomitant]
     Indication: CAR T-CELL-RELATED ENCEPHALOPATHY SYNDROME
  89. SANYRENE [Concomitant]
     Indication: PROPHYLAXIS
     Dosage: UNK, SINGLE
     Route: 003
     Dates: start: 20190907, end: 20190907
  90. DIPROPHYLLINE [Concomitant]
     Active Substance: DYPHYLLINE
     Indication: CAR T-CELL-RELATED ENCEPHALOPATHY SYNDROME
     Dosage: 0.25 G, BID
     Route: 041
     Dates: start: 20190907, end: 20190907
  91. DOPAMINE HYDROCHLORIDE. [Concomitant]
     Active Substance: DOPAMINE HYDROCHLORIDE
     Dosage: 200 MG, BID
     Route: 041
     Dates: start: 20190908, end: 20190909
  92. PLATELETS [Concomitant]
     Active Substance: HUMAN PLATELET, ALLOGENIC
     Dosage: 1 U, SINGLE
     Route: 041
     Dates: start: 20190908, end: 20190908
  93. SOLU-MEDROL [Concomitant]
     Active Substance: METHYLPREDNISOLONE SODIUM SUCCINATE
     Indication: CAR T-CELL-RELATED ENCEPHALOPATHY SYNDROME
     Dosage: 206 MG, ST
     Route: 041
     Dates: start: 20190908, end: 20190908
  94. METARAMINOL BITARTRATE [Concomitant]
     Active Substance: METARAMINOL BITARTRATE
     Dosage: 10 MG, BID
     Route: 041
     Dates: start: 20190909, end: 20190909

REACTIONS (7)
  - Cytokine release syndrome [Recovering/Resolving]
  - Pyrexia [Recovering/Resolving]
  - Heart rate increased [Recovering/Resolving]
  - CAR T-cell-related encephalopathy syndrome [Not Recovered/Not Resolved]
  - Hypotension [Recovering/Resolving]
  - Gastrointestinal haemorrhage [Fatal]
  - Sepsis [Unknown]

NARRATIVE: CASE EVENT DATE: 20190902
